FAERS Safety Report 9791207 (Version 1)
Quarter: 2013Q4

REPORT INFORMATION
  Report Type: Spontaneous
  Country: FR (occurrence: FR)
  Receive Date: 20131231
  Receipt Date: 20131231
  Transmission Date: 20140711
  Serious: Yes (Hospitalization)
  Sender: FDA-Public Use
  Company Number: FR-ROCHE-1326165

PATIENT
  Age: 52 Year
  Sex: Female

DRUGS (1)
  1. HERCEPTIN [Suspect]
     Indication: BREAST CANCER
     Dosage: 150 MG
     Route: 041
     Dates: start: 20131120, end: 20131120

REACTIONS (3)
  - Chills [Recovered/Resolved]
  - Peripheral coldness [Recovered/Resolved]
  - Vomiting [Recovered/Resolved]
